FAERS Safety Report 14053883 (Version 1)
Quarter: 2017Q4

REPORT INFORMATION
  Report Type: Spontaneous
  Country: US (occurrence: US)
  Receive Date: 20171005
  Receipt Date: 20171005
  Transmission Date: 20180321
  Serious: Yes (Hospitalization)
  Sender: FDA-Public Use
  Company Number: US-BAXTER-2017BAX034294

PATIENT
  Sex: Female

DRUGS (14)
  1. CYCLOPHOSPHAMIDE FOR INJECTION, USP [Suspect]
     Active Substance: CYCLOPHOSPHAMIDE
     Dosage: INDUCTION CHEMOTHERAPY, HYPER-CVAD, MOD 1B, MOD 2A, MOD 2B, MOD 3A
     Route: 065
  2. CYCLOPHOSPHAMIDE FOR INJECTION, USP [Suspect]
     Active Substance: CYCLOPHOSPHAMIDE
     Dosage: INDUCTION CHEMOTHERAPY, HYPER-CVAD, MOD 3B
     Route: 065
     Dates: start: 20170104
  3. DEXAMETHASONE. [Suspect]
     Active Substance: DEXAMETHASONE
     Indication: PRECURSOR B-LYMPHOBLASTIC LYMPHOMA
     Dosage: INDUCTION CHEMOTHERAPY, HYPER-CVAD, MOD 1A
     Route: 065
     Dates: start: 20160728
  4. VINCRISTINE [Suspect]
     Active Substance: VINCRISTINE
     Dosage: INDUCTION CHEMOTHERAPY, HYPER CVAD, MOD 3B
     Route: 065
     Dates: start: 20170104
  5. DEXAMETHASONE. [Suspect]
     Active Substance: DEXAMETHASONE
     Dosage: INDUCTION CHEMOTHERAPY, HYPER-CVAD, MOD 1B, MOD 2A, MOD 2B, MOD 3A
     Route: 065
  6. VINCRISTINE [Suspect]
     Active Substance: VINCRISTINE
     Dosage: INDUCTION CHEMOTHERAPY, HYPER CVAD, MOD 1B, MOD 2A, MOD 2B, MOD 3A
     Route: 065
  7. DOXORUBICIN [Suspect]
     Active Substance: DOXORUBICIN
     Dosage: INDUCTION CHEMOTHERAPY, HYPER CVAD, MOD 1B, MOD 2A, MOD 2B, MOD 3A
     Route: 065
  8. CYCLOPHOSPHAMIDE FOR INJECTION, USP [Suspect]
     Active Substance: CYCLOPHOSPHAMIDE
     Indication: PRECURSOR B-LYMPHOBLASTIC LYMPHOMA
     Dosage: INDUCTION CHEMOTHERAPY, HYPER-CVAD, MOD 1A
     Route: 065
     Dates: start: 20160728
  9. VINCRISTINE [Suspect]
     Active Substance: VINCRISTINE
     Indication: PRECURSOR B-LYMPHOBLASTIC LYMPHOMA
     Dosage: INDUCTION CHEMOTHERAPY, HYPER CVAD, MOD 1A
     Route: 065
     Dates: start: 20160728
  10. METHOTREXATE. [Suspect]
     Active Substance: METHOTREXATE
     Indication: PRECURSOR B-LYMPHOBLASTIC LYMPHOMA
     Dosage: PROPHYLACTIC CHEMOTHERAPY, 12 DOSES
     Route: 037
  11. CYTARABINE. [Suspect]
     Active Substance: CYTARABINE
     Indication: PRECURSOR B-LYMPHOBLASTIC LYMPHOMA
     Dosage: PROPHYLACTIC CHEMOTHERAPY, 12 DOSES
     Route: 037
  12. DOXORUBICIN [Suspect]
     Active Substance: DOXORUBICIN
     Indication: PRECURSOR B-LYMPHOBLASTIC LYMPHOMA
     Dosage: INDUCTION CHEMOTHERAPY, HYPER CVAD, MOD 1A
     Route: 065
     Dates: start: 20160728
  13. DOXORUBICIN [Suspect]
     Active Substance: DOXORUBICIN
     Dosage: INDUCTION CHEMOTHERAPY, HYPER-CVAD, MOD 3B
     Route: 065
     Dates: start: 20170104
  14. DEXAMETHASONE. [Suspect]
     Active Substance: DEXAMETHASONE
     Dosage: INDUCTION CHEMOTHERAPY, HYPER-CVAD, MOD 3B
     Route: 065
     Dates: start: 20170104

REACTIONS (2)
  - Acute lymphocytic leukaemia refractory [Not Recovered/Not Resolved]
  - Acute lymphocytic leukaemia recurrent [Not Recovered/Not Resolved]

NARRATIVE: CASE EVENT DATE: 20170206
